FAERS Safety Report 6216952-3 (Version None)
Quarter: 2009Q2

REPORT INFORMATION
  Report Type: 
  Country: None (occurrence: None)
  Receive Date: 20090604
  Receipt Date: 20090521
  Transmission Date: 20091009
  Serious: Yes (Other)
  Sender: FDA-Public Use
  Company Number: CERZ-1000653

PATIENT
  Age: 55 Year
  Sex: Male

DRUGS (1)
  1. CEREZYME [Suspect]
     Indication: GAUCHER'S DISEASE
     Dosage: 22 U/KG, Q2W, INTRAVENOUS
     Route: 042
     Dates: start: 19910911

REACTIONS (18)
  - AORTIC DISORDER [None]
  - BARRETT'S OESOPHAGUS [None]
  - BONE PAIN [None]
  - CARDIAC VALVE DISEASE [None]
  - DERMATITIS CONTACT [None]
  - DYSPLASIA [None]
  - HEADACHE [None]
  - HERPES ZOSTER [None]
  - IMMUNE SYSTEM DISORDER [None]
  - INFLUENZA LIKE ILLNESS [None]
  - MITRAL VALVE PROLAPSE [None]
  - MULTIPLE MYELOMA [None]
  - MUSCULOSKELETAL STIFFNESS [None]
  - OSTEOPENIA [None]
  - OSTEOPOROSIS [None]
  - PATHOLOGICAL FRACTURE [None]
  - PROSTATE INFECTION [None]
  - RASH MACULAR [None]
